FAERS Safety Report 7525312-4 (Version None)
Quarter: 2011Q2

REPORT INFORMATION
  Report Type: 
  Country: None (occurrence: None)
  Receive Date: 20110526
  Receipt Date: 20110519
  Transmission Date: 20111010
  Serious: Yes (Hospitalization, Other)
  Sender: FDA-Public Use
  Company Number: CL-313-2011

PATIENT
  Age: 27 Year
  Sex: Female

DRUGS (4)
  1. CLONIDINE [Concomitant]
  2. ONDANSETRON [Suspect]
     Indication: PROPHYLAXIS OF NAUSEA AND VOMITING
     Dosage: 4MG ONCE, INTRAVENOUS (ONE DOSE)
     Route: 042
  3. PRAZOSIN HCL [Concomitant]
  4. NIFEDIPINE [Concomitant]

REACTIONS (5)
  - HYPOTENSION [None]
  - BLOOD PH DECREASED [None]
  - BASE EXCESS NEGATIVE [None]
  - ELECTROCARDIOGRAM QT PROLONGED [None]
  - BRADYCARDIA [None]
